FAERS Safety Report 17528130 (Version 1)
Quarter: 2020Q1

REPORT INFORMATION
  Report Type: Report from Study
  Country: US (occurrence: US)
  Receive Date: 20200311
  Receipt Date: 20200311
  Transmission Date: 20200409
  Serious: Yes (Hospitalization)
  Sender: FDA-Public Use
  Company Number: US-BAYER-2020-042442

PATIENT
  Age: 14 Year
  Sex: Male

DRUGS (1)
  1. NEXAVAR [Suspect]
     Active Substance: SORAFENIB
     Indication: ACUTE MYELOID LEUKAEMIA
     Dosage: 200 MG, HS
     Route: 048
     Dates: start: 20200207

REACTIONS (4)
  - Off label use [None]
  - Product use issue [None]
  - Hospitalisation [Unknown]
  - Product use in unapproved indication [None]

NARRATIVE: CASE EVENT DATE: 20200207
